FAERS Safety Report 4875121-X (Version None)
Quarter: 2006Q1

REPORT INFORMATION
  Report Type: 
  Country: None (occurrence: None)
  Receive Date: 20060109
  Receipt Date: 20051118
  Transmission Date: 20060701
  Serious: Yes (Other)
  Sender: FDA-Public Use
  Company Number: 001#1#2005-00299

PATIENT
  Age: 8 Year
  Sex: Female

DRUGS (1)
  1. ATMADISC MITE [Suspect]
     Dosage: 150UG TWICE PER DAY
     Route: 055
     Dates: start: 20051007, end: 20051114

REACTIONS (2)
  - SCOTOMA [None]
  - VISUAL DISTURBANCE [None]
